FAERS Safety Report 17360526 (Version 1)
Quarter: 2020Q1

REPORT INFORMATION
  Report Type: Spontaneous
  Country: US (occurrence: US)
  Receive Date: 20200203
  Receipt Date: 20200203
  Transmission Date: 20200409
  Serious: No
  Sender: FDA-Public Use
  Company Number: US-MYLANLABS-2020M1008022

PATIENT
  Age: 14 Year
  Sex: Female
  Weight: 89 kg

DRUGS (1)
  1. XULANE [Suspect]
     Active Substance: ETHINYL ESTRADIOL\NORELGESTROMIN
     Indication: MENORRHAGIA
     Dosage: 150 AS PRESCRIBED
     Route: 062
     Dates: start: 20200117

REACTIONS (2)
  - Off label use [Recovering/Resolving]
  - Product adhesion issue [Unknown]

NARRATIVE: CASE EVENT DATE: 20200117
